FAERS Safety Report 10466476 (Version 1)
Quarter: 2014Q3

REPORT INFORMATION
  Report Type: Spontaneous
  Country: US (occurrence: None)
  Receive Date: 20140919
  Receipt Date: 20140919
  Transmission Date: 20150326
  Serious: Yes (Life-Threatening, Hospitalization, Disabling)
  Sender: FDA-Public Use
  Company Number: None

PATIENT
  Age: 43 Year
  Sex: Female
  Weight: 129.28 kg

DRUGS (1)
  1. ALTAVERA [Suspect]
     Active Substance: ETHINYL ESTRADIOL\LEVONORGESTREL
     Indication: CONTRACEPTION
     Dosage: 1 PILL A DAY?ONCE DAILY?TAKEN BY MOUTH
     Route: 048

REACTIONS (3)
  - Deep vein thrombosis [None]
  - Cardiac disorder [None]
  - Pulmonary embolism [None]

NARRATIVE: CASE EVENT DATE: 20120611
